FAERS Safety Report 18349756 (Version 1)
Quarter: 2020Q4

REPORT INFORMATION
  Report Type: Spontaneous
  Country: US (occurrence: US)
  Receive Date: 20201006
  Receipt Date: 20201006
  Transmission Date: 20210114
  Serious: Yes (Hospitalization, Other)
  Sender: FDA-Public Use
  Company Number: US-ELITE LABORATORIES INC.-2020ELT00093

PATIENT
  Age: 30 Year
  Sex: Male

DRUGS (1)
  1. NALTREXONE [Suspect]
     Active Substance: NALTREXONE
     Dosage: 1X/MONTH
     Route: 030

REACTIONS (2)
  - Myositis [Recovering/Resolving]
  - Embolia cutis medicamentosa [Recovering/Resolving]
